FAERS Safety Report 19636796 (Version 1)
Quarter: 2021Q3

REPORT INFORMATION
  Report Type: Spontaneous
  Country: CA (occurrence: CA)
  Receive Date: 20210730
  Receipt Date: 20210730
  Transmission Date: 20211014
  Serious: Yes (Other)
  Sender: FDA-Public Use
  Company Number: CA-ACCORD-233858

PATIENT
  Age: 86 Year
  Sex: Male

DRUGS (3)
  1. METHOTREXATE. [Suspect]
     Active Substance: METHOTREXATE
     Indication: RHEUMATOID ARTHRITIS
     Route: 058
  2. XELJANZ [Suspect]
     Active Substance: TOFACITINIB CITRATE
     Indication: RHEUMATOID ARTHRITIS
     Route: 048
  3. PREDNISONE. [Concomitant]
     Active Substance: PREDNISONE
     Indication: RHEUMATOID ARTHRITIS

REACTIONS (7)
  - Diarrhoea [Recovered/Resolved]
  - Product use issue [Unknown]
  - Stomatitis [Recovered/Resolved]
  - C-reactive protein increased [Recovered/Resolved]
  - Infection [Recovered/Resolved]
  - Rheumatoid arthritis [Recovered/Resolved]
  - Drug intolerance [Unknown]
